FAERS Safety Report 4716804-1 (Version None)
Quarter: 2005Q3

REPORT INFORMATION
  Report Type: 
  Country: None (occurrence: None)
  Receive Date: 20050719
  Receipt Date: 20050630
  Transmission Date: 20060218
  Serious: Yes (Hospitalization)
  Sender: FDA-Public Use
  Company Number: JP-MERCK-0507USA00556

PATIENT
  Age: 73 Year
  Sex: Female

DRUGS (6)
  1. PEPCID RPD [Suspect]
     Indication: REFLUX OESOPHAGITIS
     Route: 048
     Dates: start: 20030307
  2. LIPITOR [Suspect]
     Route: 048
     Dates: start: 20030221
  3. AMLODIN [Concomitant]
     Route: 048
  4. MELBIN [Concomitant]
     Route: 048
     Dates: start: 20050129
  5. DEPAS [Concomitant]
     Route: 048
  6. TAKEPRON [Suspect]
     Route: 048

REACTIONS (1)
  - LIVER FUNCTION TEST ABNORMAL [None]
